FAERS Safety Report 12095459 (Version 8)
Quarter: 2018Q1

REPORT INFORMATION
  Report Type: Report from Study
  Country: US (occurrence: US)
  Receive Date: 20160219
  Receipt Date: 20180118
  Transmission Date: 20180508
  Serious: Yes (Death, Life-Threatening, Hospitalization)
  Sender: FDA-Public Use
  Company Number: US-PFIZER INC-2016102087

PATIENT
  Age: 40 Year
  Sex: Male
  Weight: 98 kg

DRUGS (2)
  1. DOXORUBICIN HCL [Suspect]
     Active Substance: DOXORUBICIN HYDROCHLORIDE
     Indication: PERIPHERAL NERVE SHEATH TUMOUR MALIGNANT
     Dosage: 75 MG/M2, CYCLIC
     Route: 042
     Dates: start: 20160120, end: 20160120
  2. OLARATUMAB [Suspect]
     Active Substance: OLARATUMAB
     Indication: PERIPHERAL NERVE SHEATH TUMOUR MALIGNANT
     Dosage: 15 MG/KG, CYCLIC
     Route: 042
     Dates: start: 20160129, end: 20160129

REACTIONS (1)
  - Colitis [Fatal]

NARRATIVE: CASE EVENT DATE: 20160203
